FAERS Safety Report 14714461 (Version 2)
Quarter: 2018Q2

REPORT INFORMATION
  Report Type: Spontaneous
  Country: US (occurrence: US)
  Receive Date: 20180404
  Receipt Date: 20180504
  Transmission Date: 20180711
  Serious: No
  Sender: FDA-Public Use
  Company Number: US-GLAXOSMITHKLINE-US2018055996

PATIENT
  Age: 43 Year
  Sex: Female

DRUGS (2)
  1. BENLYSTA [Concomitant]
     Active Substance: BELIMUMAB
  2. BENLYSTA [Suspect]
     Active Substance: BELIMUMAB
     Indication: SYSTEMIC LUPUS ERYTHEMATOSUS
     Dosage: 200 MG, WE
     Route: 058
     Dates: start: 201803

REACTIONS (2)
  - Overdose [Unknown]
  - Product quality issue [Unknown]

NARRATIVE: CASE EVENT DATE: 20180329
